FAERS Safety Report 9096691 (Version 1)
Quarter: 2013Q1

REPORT INFORMATION
  Report Type: Spontaneous
  Country: US (occurrence: US)
  Receive Date: 20130211
  Receipt Date: 20130211
  Transmission Date: 20140127
  Serious: No
  Sender: FDA-Public Use
  Company Number: US-ASTRAZENECA-2012SE74985

PATIENT
  Age: 67 Year
  Sex: Female

DRUGS (6)
  1. NEXIUM [Suspect]
     Dosage: ON AN EMPTY STOMACH
     Route: 048
     Dates: start: 20110930
  2. CLONIDINE [Concomitant]
  3. SPIRONOLACTONE [Concomitant]
  4. COZAAR [Concomitant]
  5. TRAMADOL [Concomitant]
  6. FLU VACCINE [Concomitant]

REACTIONS (2)
  - Dysphagia [Unknown]
  - Intervertebral disc degeneration [Unknown]
